FAERS Safety Report 20430078 (Version 1)
Quarter: 2022Q1

REPORT INFORMATION
  Report Type: Report from Study
  Country: FR (occurrence: FR)
  Receive Date: 20220204
  Receipt Date: 20220204
  Transmission Date: 20220423
  Serious: Yes (Hospitalization)
  Sender: FDA-Public Use
  Company Number: FR-SERVIER-S20001953

PATIENT

DRUGS (8)
  1. ONCASPAR [Suspect]
     Active Substance: PEGASPARGASE
     Indication: Acute lymphocytic leukaemia
     Dosage: 1630 IU ON DAY 15 AND 43
     Route: 042
     Dates: start: 20191213
  2. MERCAPTOPURINE [Suspect]
     Active Substance: MERCAPTOPURINE
     Indication: Acute lymphocytic leukaemia
     Dosage: 44 MG, ON DAYS 1-14 AND 29-42
     Route: 048
     Dates: start: 20191129
  3. CYCLOPHOSPHAMIDE [Suspect]
     Active Substance: CYCLOPHOSPHAMIDE
     Indication: Acute lymphocytic leukaemia
     Dosage: 650 MG ON DAYS 1 AND 29
     Route: 042
     Dates: start: 20191129
  4. VINCRISTINE SULFATE [Suspect]
     Active Substance: VINCRISTINE SULFATE
     Indication: Acute lymphocytic leukaemia
     Dosage: 1 MG ON DAYS 15, 22, 43 AND 50
     Route: 042
     Dates: start: 20191213
  5. CYTARABINE [Suspect]
     Active Substance: CYTARABINE
     Indication: Acute lymphocytic leukaemia
     Dosage: 50 MG ON DAYS 3-6 AND 10-13
     Route: 042
     Dates: start: 20191201
  6. CYTARABINE [Suspect]
     Active Substance: CYTARABINE
     Dosage: 30 MG ON DAYS 3 AND 31
     Route: 037
     Dates: start: 20191201
  7. METHOTREXATE [Suspect]
     Active Substance: METHOTREXATE
     Indication: Acute lymphocytic leukaemia
     Dosage: 12 MG ON DAYS 3 AND 31
     Route: 037
     Dates: start: 20191201
  8. HYDROCORTISONE [Suspect]
     Active Substance: HYDROCORTISONE
     Indication: Acute lymphocytic leukaemia
     Dosage: 15 MG ON DAYS 3 AND 31
     Route: 037
     Dates: start: 20191201

REACTIONS (1)
  - Febrile bone marrow aplasia [Recovering/Resolving]

NARRATIVE: CASE EVENT DATE: 20191218
